FAERS Safety Report 6313942-7 (Version None)
Quarter: 2009Q3

REPORT INFORMATION
  Report Type: 
  Country: None (occurrence: None)
  Receive Date: 20090818
  Receipt Date: 20090812
  Transmission Date: 20100115
  Serious: Yes (Other)
  Sender: FDA-Public Use
  Company Number: GB-TEVA-205912ISR

PATIENT
  Age: 51 Year
  Sex: Female
  Weight: 102.96 kg

DRUGS (4)
  1. AMITRIPTYLINE [Suspect]
     Indication: DEPRESSION
     Route: 048
     Dates: start: 20051101
  2. FUROSEMIDE [Suspect]
     Indication: JOINT SWELLING
     Route: 048
     Dates: start: 20060901, end: 20090709
  3. IBUPROFEN [Suspect]
     Indication: PAIN
     Route: 048
     Dates: start: 20060301
  4. RISPERIDONE [Suspect]
     Indication: SCHIZOAFFECTIVE DISORDER
     Route: 048
     Dates: start: 20070730

REACTIONS (2)
  - BLOOD OSMOLARITY DECREASED [None]
  - BURNING SENSATION [None]
